FAERS Safety Report 13947981 (Version 3)
Quarter: 2017Q4

REPORT INFORMATION
  Report Type: Spontaneous
  Country: US (occurrence: US)
  Receive Date: 20170908
  Receipt Date: 20171128
  Transmission Date: 20180320
  Serious: No
  Sender: FDA-Public Use
  Company Number: US-PFIZER INC-2017386816

PATIENT
  Age: 62 Year
  Sex: Male

DRUGS (1)
  1. XELJANZ [Suspect]
     Active Substance: TOFACITINIB CITRATE
     Dosage: 5 MG, UNK
     Dates: start: 201707

REACTIONS (6)
  - Myalgia [Unknown]
  - Flatulence [Unknown]
  - Fatigue [Unknown]
  - Acne [Unknown]
  - Bone pain [Unknown]
  - Bursitis [Unknown]

NARRATIVE: CASE EVENT DATE: 20170805
